FAERS Safety Report 8622603-0 (Version None)
Quarter: 2012Q3

REPORT INFORMATION
  Report Type: 
  Country: None (occurrence: None)
  Receive Date: 20120813
  Receipt Date: 20120730
  Transmission Date: 20120928
  Serious: Yes (Death)
  Sender: FDA-Public Use
  Company Number: 2012033042

PATIENT
  Age: 83 Year
  Sex: Female

DRUGS (7)
  1. PRIVIGEN [Suspect]
     Indication: NON-HODGKIN'S LYMPHOMA
     Dosage: 10 G, QD, INTRAVENOUS
     Route: 042
     Dates: start: 20120112
  2. AMLODIPINE [Concomitant]
  3. METOPROLOL TARTRATE [Concomitant]
  4. CLOPIDOGREL BISULFATE [Concomitant]
  5. SIMVASTATIN [Concomitant]
  6. RAMIPRIL [Concomitant]
  7. TORSEMIDE [Concomitant]

REACTIONS (3)
  - INFECTION [None]
  - NON-HODGKIN'S LYMPHOMA [None]
  - DISEASE PROGRESSION [None]
